FAERS Safety Report 5731446-7 (Version None)
Quarter: 2008Q2

REPORT INFORMATION
  Report Type: 
  Country: None (occurrence: None)
  Receive Date: 20080508
  Receipt Date: 20080505
  Transmission Date: 20081010
  Serious: Yes (Other)
  Sender: FDA-Public Use
  Company Number: PHBS2008US04432

PATIENT
  Age: 8 Year
  Sex: Male

DRUGS (17)
  1. DEXTROAMPHETAMINE [Concomitant]
  2. RISPERIDONE [Concomitant]
     Dosage: 0.25 MG, BID
  3. RISPERIDONE [Concomitant]
     Dosage: 0.5 MG, BID
  4. RISPERIDONE [Concomitant]
     Dosage: 1 MG, BID
  5. RISPERIDONE [Concomitant]
     Dosage: 1.5 MG, BID
  6. ATOMOXETINE HCL [Concomitant]
     Dosage: 10 MG, QD
  7. ATOMOXETINE HCL [Concomitant]
     Dosage: 18 MG, QD
  8. ATOMOXETINE HCL [Concomitant]
     Dosage: 25 MG, QD
  9. ATOMOXETINE HCL [Concomitant]
     Dosage: 10 MG, QD
  10. QUETIAPINE FUMARATE [Concomitant]
     Dosage: 25 MG, QD
  11. QUETIAPINE FUMARATE [Concomitant]
     Dosage: 25 MG, BID
  12. QUETIAPINE FUMARATE [Concomitant]
     Dosage: 100 MG, QD
  13. METHYLPHENIDATE HCL [Suspect]
     Indication: ATTENTION DEFICIT/HYPERACTIVITY DISORDER
     Dosage: 2.5 MG, BID
  14. METHYLPHENIDATE HCL [Suspect]
     Dosage: 5 MG, BID
  15. METHYLPHENIDATE HCL [Suspect]
     Dosage: 15 MG, BID
  16. METHYLPHENIDATE HCL [Suspect]
     Dosage: 27 MG, QD
  17. METHYLPHENIDATE HCL [Suspect]
     Dosage: 36 MG/DAY

REACTIONS (11)
  - AGGRESSION [None]
  - BRUXISM [None]
  - EXCESSIVE EYE BLINKING [None]
  - GRIMACING [None]
  - GRUNTING [None]
  - INTERMITTENT EXPLOSIVE DISORDER [None]
  - LEARNING DISORDER [None]
  - MUSCLE TWITCHING [None]
  - NIGHTMARE [None]
  - POOR QUALITY SLEEP [None]
  - TIC [None]
